FAERS Safety Report 20373579 (Version 2)
Quarter: 2022Q3

REPORT INFORMATION
  Report Type: Report from Study
  Country: PA (occurrence: PA)
  Receive Date: 20220125
  Receipt Date: 20220824
  Transmission Date: 20221026
  Serious: Yes (Other)
  Sender: FDA-Public Use
  Company Number: PA-NOVARTISPH-NVSC2022PA013351

PATIENT
  Sex: Female

DRUGS (1)
  1. KISQALI [Suspect]
     Active Substance: RIBOCICLIB
     Indication: Breast cancer metastatic
     Dosage: 600 MG, QD (SUSPENDED ON 04 AUG)
     Route: 048
     Dates: start: 20190601

REACTIONS (3)
  - Cholelithiasis [Unknown]
  - Flatulence [Unknown]
  - Pain [Unknown]
